FAERS Safety Report 9068467 (Version 1)
Quarter: 2013Q1

REPORT INFORMATION
  Report Type: Spontaneous
  Country: US (occurrence: US)
  Receive Date: 20130206
  Receipt Date: 20130206
  Transmission Date: 20140127
  Serious: Yes (Hospitalization, Other)
  Sender: FDA-Public Use
  Company Number: US-ELI_LILLY_AND_COMPANY-US201301010096

PATIENT
  Sex: Male

DRUGS (5)
  1. HUMATROPE [Suspect]
     Indication: PITUITARY TUMOUR
  2. HUMATROPE [Suspect]
     Dosage: 0.8 UG, TID
  3. TESTOSTERONE [Concomitant]
  4. MEDROL [Concomitant]
  5. SYNTHROID [Concomitant]

REACTIONS (6)
  - Diverticulitis [Unknown]
  - Diverticulum [Unknown]
  - Diarrhoea [Unknown]
  - Haematochezia [Unknown]
  - Hip fracture [Unknown]
  - Haemarthrosis [Unknown]
